FAERS Safety Report 9095097 (Version 1)
Quarter: 2013Q1

REPORT INFORMATION
  Report Type: Spontaneous
  Country: US (occurrence: None)
  Receive Date: 20130214
  Receipt Date: 20130214
  Transmission Date: 20140127
  Serious: Yes (Other)
  Sender: FDA-Public Use
  Company Number: None

PATIENT
  Age: 47 Year
  Sex: Female
  Weight: 47 kg

DRUGS (2)
  1. ZIPRASIDONE 160MG [Suspect]
     Dosage: GENERIC SINCE  MAR,2013
     Dates: start: 201303
  2. ZIPRASIDONE 160MG [Suspect]
     Dosage: GENERIC SINCE  MAR,2013
     Dates: start: 201303

REACTIONS (6)
  - Product quality issue [None]
  - No therapeutic response [None]
  - Therapeutic response unexpected with drug substitution [None]
  - Mood swings [None]
  - Self-injurious ideation [None]
  - Violence-related symptom [None]
